FAERS Safety Report 6497684-3 (Version None)
Quarter: 2009Q4

REPORT INFORMATION
  Report Type: 
  Country: None (occurrence: None)
  Receive Date: 20091125
  Receipt Date: 20090311
  Transmission Date: 20100525
  Serious: Yes (Hospitalization)
  Sender: FDA-Public Use
  Company Number: 2009BH003916

PATIENT
  Age: 51 Year
  Sex: Male

DRUGS (10)
  1. DIANEAL [Suspect]
     Indication: PERITONEAL DIALYSIS
     Dosage: IP
     Route: 033
     Dates: start: 20070510
  2. DIANEAL [Suspect]
     Indication: PERITONEAL DIALYSIS
     Dosage: IP
     Route: 033
     Dates: start: 20070510
  3. PHOSLO [Concomitant]
  4. LOVAZA [Concomitant]
  5. SYNTHROID [Concomitant]
  6. LIPITOR [Concomitant]
  7. COLACE [Concomitant]
  8. NU-IRON [Concomitant]
  9. GENTAMICIN [Concomitant]
  10. EPOGEN [Concomitant]

REACTIONS (2)
  - PERITONITIS BACTERIAL [None]
  - PYREXIA [None]
